FAERS Safety Report 4899452-2 (Version None)
Quarter: 2006Q1

REPORT INFORMATION
  Report Type: 
  Country: None (occurrence: None)
  Receive Date: 20060118
  Receipt Date: 20050711
  Transmission Date: 20060701
  Serious: No
  Sender: FDA-Public Use
  Company Number: 2005001297

PATIENT
  Age: 83 Year
  Sex: Female
  Weight: 58.514 kg

DRUGS (1)
  1. TARCEVA [Suspect]
     Indication: NON-SMALL CELL LUNG CANCER
     Dosage: 150 MG (QD); 100 MG (QD) : ORAL
     Route: 048
     Dates: start: 20050101

REACTIONS (4)
  - DIARRHOEA [None]
  - DRY EYE [None]
  - FATIGUE [None]
  - INTRAOCULAR PRESSURE INCREASED [None]
